FAERS Safety Report 5345908-8 (Version None)
Quarter: 2007Q2

REPORT INFORMATION
  Report Type: 
  Country: None (occurrence: None)
  Receive Date: 20070605
  Receipt Date: 20070530
  Transmission Date: 20071010
  Serious: Yes (Other)
  Sender: FDA-Public Use
  Company Number: A0653509A

PATIENT
  Age: 55 Year
  Sex: Female

DRUGS (4)
  1. PAXIL [Suspect]
     Indication: DEPRESSION
     Dosage: 40MG PER DAY
     Route: 048
     Dates: start: 19960101
  2. PAROXETINE [Suspect]
     Indication: DEPRESSION
  3. KLONOPIN [Concomitant]
  4. SYNTHROID [Concomitant]

REACTIONS (11)
  - AMNESIA [None]
  - ARTHRALGIA [None]
  - CHEST PAIN [None]
  - DEPRESSION [None]
  - DRUG WITHDRAWAL SYNDROME [None]
  - HEADACHE [None]
  - HEART VALVE INSUFFICIENCY [None]
  - INFLUENZA [None]
  - MITRAL VALVE INCOMPETENCE [None]
  - MYALGIA [None]
  - PALPITATIONS [None]
